FAERS Safety Report 6862974-9 (Version None)
Quarter: 2010Q3

REPORT INFORMATION
  Report Type: 
  Country: None (occurrence: None)
  Receive Date: 20100719
  Receipt Date: 20100702
  Transmission Date: 20110219
  Serious: Yes (Death)
  Sender: FDA-Public Use
  Company Number: 2010000001

PATIENT
  Age: 79 Year
  Sex: Female
  Weight: 35.3 kg

DRUGS (4)
  1. ERLOTINIB HYDROCHLORIDE [Suspect]
     Indication: LUNG ADENOCARCINOMA
     Dosage: 150 MG, QD, ORAL
     Route: 048
     Dates: start: 20080820, end: 20081015
  2. BIOFERMIN (BIOFERMIN) [Concomitant]
  3. ZOLPIDEM TARTRATE [Concomitant]
  4. LENDORM [Concomitant]

REACTIONS (5)
  - LUNG ADENOCARCINOMA [None]
  - LUNG DISORDER [None]
  - MALIGNANT NEOPLASM PROGRESSION [None]
  - OPPORTUNISTIC INFECTION [None]
  - PNEUMONIA [None]
